FAERS Safety Report 4757270-X (Version None)
Quarter: 2005Q3

REPORT INFORMATION
  Report Type: 
  Country: None (occurrence: None)
  Receive Date: 20050829
  Receipt Date: 20050817
  Transmission Date: 20060218
  Serious: Yes (Hospitalization)
  Sender: FDA-Public Use
  Company Number: 2005052803

PATIENT
  Age: 82 Year
  Sex: Female

DRUGS (7)
  1. AMLODIPINE [Suspect]
     Indication: ILL-DEFINED DISORDER
     Dosage: 5 MG, ORAL
     Route: 048
  2. PANTOPRAZOLE SODIUM [Suspect]
     Indication: ILL-DEFINED DISORDER
     Dosage: 20 MG (1 IN 1 D), ORAL
     Route: 048
  3. ACEPROMAZINE (ACEPROMAZINE) [Suspect]
     Indication: ILL-DEFINED DISORDER
     Dosage: 20 MG (1 IN 1 D)
     Dates: end: 20050215
  4. NEXEN (NIMESULIDE) [Suspect]
     Indication: ILL-DEFINED DISORDER
     Dosage: 150 MG (1 IN 1 D), ORAL
     Route: 048
  5. FENOFIBRATE [Suspect]
     Indication: ILL-DEFINED DISORDER
     Dosage: 160 MG (1 IN 1 D), ORAL
     Route: 048
  6. ATACAND [Suspect]
     Indication: ILL-DEFINED DISORDER
     Dosage: 8 MG (1 IN 1 D), ORAL
     Route: 048
     Dates: end: 20050221
  7. COLCHIMAX (COLCHICINE, DICYCLOVERINE HYDROCHLORIDE) [Concomitant]

REACTIONS (6)
  - ANAEMIA [None]
  - BETA 2 MICROGLOBULIN DECREASED [None]
  - HYPERPROTEINAEMIA [None]
  - HYPOGAMMAGLOBULINAEMIA [None]
  - LABORATORY TEST ABNORMAL [None]
  - SYSTEMIC LUPUS ERYTHEMATOSUS [None]
